FAERS Safety Report 7931227 (Version 3)
Quarter: 2013Q2

REPORT INFORMATION
  Report Type: Spontaneous
  Country: US (occurrence: US)
  Receive Date: 20110505
  Receipt Date: 20130531
  Transmission Date: 20140414
  Serious: Yes (Other)
  Sender: FDA-Public Use
  Company Number: US-US-EMD SERONO, INC.-234267J08USA

PATIENT
  Sex: Female
  Weight: 63 kg

DRUGS (7)
  1. REBIF [Suspect]
     Indication: MULTIPLE SCLEROSIS
     Route: 058
     Dates: start: 20030703, end: 20030821
  2. REBIF [Suspect]
     Route: 058
     Dates: start: 20031017, end: 2012
  3. REBIF [Suspect]
     Route: 058
     Dates: start: 2012, end: 20121212
  4. METHADONE [Concomitant]
     Indication: ASTHENIA
  5. FLEXERIL                           /00428402/ [Concomitant]
     Indication: MUSCLE SPASMS
  6. AMBIEN [Concomitant]
     Indication: SLEEP DISORDER
     Dates: start: 2005
  7. BUTALBITAL [Concomitant]
     Indication: PAIN
     Dates: start: 1997

REACTIONS (17)
  - Cardiac failure congestive [Not Recovered/Not Resolved]
  - Coronary artery occlusion [Unknown]
  - Cardiac flutter [Unknown]
  - Bradycardia [Unknown]
  - Memory impairment [Unknown]
  - Anger [Unknown]
  - Dizziness [Unknown]
  - Gait disturbance [Unknown]
  - Anxiety [Unknown]
  - Weight increased [Unknown]
  - Somnolence [Unknown]
  - Depression [Unknown]
  - Influenza like illness [Unknown]
  - Pain [Unknown]
  - Hepatic enzyme increased [Unknown]
  - Injection site mass [Unknown]
  - Injection site erythema [Unknown]
